FAERS Safety Report 4809373-9 (Version None)
Quarter: 2005Q4

REPORT INFORMATION
  Report Type: 
  Country: None (occurrence: None)
  Receive Date: 20051021
  Receipt Date: 20030529
  Transmission Date: 20060501
  Serious: No
  Sender: FDA-Public Use
  Company Number: US_980706519

PATIENT
  Age: 16 Year
  Sex: Male
  Weight: 56 kg

DRUGS (4)
  1. ZYPREXA [Suspect]
     Indication: ANTISOCIAL PERSONALITY DISORDER
     Dosage: 5 MG/DAY
     Dates: start: 19971124
  2. ZYPREXA [Suspect]
     Indication: BIPOLAR DISORDER
     Dosage: 5 MG/DAY
     Dates: start: 19971124
  3. ESKALITH [Concomitant]
  4. ZOLOFT [Concomitant]

REACTIONS (3)
  - ANAEMIA [None]
  - BLOOD IRON INCREASED [None]
  - THROMBOCYTOPENIA [None]
